FAERS Safety Report 18644203 (Version 1)
Quarter: 2020Q4

REPORT INFORMATION
  Report Type: Other
  Country: FR (occurrence: FR)
  Receive Date: 20201221
  Receipt Date: 20201221
  Transmission Date: 20210114
  Serious: Yes (Other)
  Sender: FDA-Public Use
  Company Number: FR-ROCHE-2733994

PATIENT

DRUGS (1)
  1. ALTEPLASE. [Suspect]
     Active Substance: ALTEPLASE
     Indication: ISCHAEMIC STROKE
     Dosage: (10% BOLUS; 90% BY INFUSION PUMP DURING 1 HOUR
     Route: 042

REACTIONS (8)
  - Cerebral haemorrhage [Unknown]
  - Haemorrhagic infarction [Unknown]
  - Pulmonary embolism [Unknown]
  - Myocardial infarction [Unknown]
  - Seizure [Unknown]
  - Deep vein thrombosis [Unknown]
  - Cerebral haematoma [Unknown]
  - Pneumonia [Unknown]
